FAERS Safety Report 9590309 (Version 1)
Quarter: 2013Q4

REPORT INFORMATION
  Report Type: Spontaneous
  Country: US (occurrence: US)
  Receive Date: 20131003
  Receipt Date: 20131003
  Transmission Date: 20140711
  Serious: No
  Sender: FDA-Public Use
  Company Number: US-AMGEN-USASP2012076831

PATIENT
  Age: 47 Year
  Sex: Female

DRUGS (5)
  1. ENBREL [Suspect]
     Indication: PRODUCT USED FOR UNKNOWN INDICATION
     Dosage: 50 MG, WEEKLY
     Route: 058
  2. CELEBREX [Concomitant]
     Dosage: 200 MG, UNK
  3. ZOMIG [Concomitant]
     Dosage: 2.5 MG, UNK
  4. TOPAMAX [Concomitant]
     Dosage: 100 MG, UNK
  5. PREDNISONE [Concomitant]
     Dosage: 10 MG, UNK

REACTIONS (1)
  - Gastrooesophageal reflux disease [Unknown]
